FAERS Safety Report 5960474-1 (Version None)
Quarter: 2008Q4

REPORT INFORMATION
  Report Type: 
  Country: None (occurrence: None)
  Receive Date: 20081118
  Receipt Date: 20081104
  Transmission Date: 20090506
  Serious: Yes (Death)
  Sender: FDA-Public Use
  Company Number: 2008002899

PATIENT
  Age: 58 Year
  Sex: Male

DRUGS (1)
  1. ERLOTINIB (ERLOTINIB) (TABLET) (ERLOTINIB) [Suspect]
     Indication: LUNG ADENOCARCINOMA
     Dosage: (150 MG,EVERY SECOND DAY), ORAL
     Route: 048
     Dates: start: 20080214, end: 20080518

REACTIONS (2)
  - DROWNING [None]
  - MYOCARDIAL INFARCTION [None]
